FAERS Safety Report 18286545 (Version 2)
Quarter: 2020Q3

REPORT INFORMATION
  Report Type: Other
  Country: US (occurrence: US)
  Receive Date: 20200920
  Receipt Date: 20200924
  Transmission Date: 20201103
  Serious: Yes (Hospitalization, Other)
  Sender: FDA-Public Use
  Company Number: US-ROCHE-2675720

PATIENT
  Sex: Male

DRUGS (1)
  1. OCREVUS [Suspect]
     Active Substance: OCRELIZUMAB
     Indication: RELAPSING MULTIPLE SCLEROSIS
     Route: 065
     Dates: start: 20200723

REACTIONS (5)
  - Upper respiratory tract infection [Not Recovered/Not Resolved]
  - Thyroid mass [Recovered/Resolved]
  - Chest discomfort [Recovered/Resolved]
  - Pneumothorax [Recovered/Resolved]
  - Renal disorder [Not Recovered/Not Resolved]
